FAERS Safety Report 10256780 (Version 1)
Quarter: 2014Q2

REPORT INFORMATION
  Report Type: Report from Study
  Country: US (occurrence: US)
  Receive Date: 20140624
  Receipt Date: 20140624
  Transmission Date: 20141212
  Serious: Yes (Other)
  Sender: FDA-Public Use
  Company Number: PHEH2014US012606

PATIENT
  Sex: Male

DRUGS (15)
  1. TRILEPTAL [Suspect]
     Indication: BIPOLAR DISORDER
     Dosage: 600 MG, UNK
  2. TRILEPTAL [Suspect]
     Dosage: 300 MG, UNK
  3. FANAPT [Suspect]
     Indication: BIPOLAR DISORDER
     Dosage: 6 MG, BID
     Route: 048
  4. LITHIUM [Concomitant]
     Indication: BIPOLAR DISORDER
     Dosage: UNK UKN, UNK
  5. BENZTROPINE [Concomitant]
     Indication: BIPOLAR DISORDER
     Dosage: UNK UKN, UNK
  6. TRAZODONE [Concomitant]
     Indication: BIPOLAR DISORDER
     Dosage: UNK UKN, UNK
  7. SERTRALINE [Concomitant]
     Indication: BIPOLAR DISORDER
     Dosage: UNK UKN, UNK
  8. CLONAZEPAM [Concomitant]
     Indication: BIPOLAR DISORDER
     Dosage: UNK UKN, UNK
  9. ABILIFY [Concomitant]
     Indication: BIPOLAR DISORDER
     Dosage: UNK UKN, UNK
  10. RISPERDAL [Concomitant]
     Indication: BIPOLAR DISORDER
     Dosage: UNK UKN, UNK
  11. SAPHRIS [Concomitant]
     Indication: BIPOLAR DISORDER
     Dosage: UNK UKN, UNK
  12. SEROQUEL [Concomitant]
     Indication: BIPOLAR DISORDER
     Dosage: UNK UKN, UNK
  13. AMBIEN [Concomitant]
     Indication: BIPOLAR DISORDER
     Dosage: UNK UKN, UNK
  14. GEODON [Concomitant]
     Indication: BIPOLAR DISORDER
  15. ZYPREXA [Concomitant]
     Indication: BIPOLAR DISORDER
     Dosage: UNK UKN, UNK

REACTIONS (2)
  - Psychotic disorder [Unknown]
  - Hallucination, visual [Unknown]
